FAERS Safety Report 5084776-9 (Version None)
Quarter: 2006Q3

REPORT INFORMATION
  Report Type: 
  Country: None (occurrence: None)
  Receive Date: 20060815
  Receipt Date: 20060731
  Transmission Date: 20061208
  Serious: Yes (Hospitalization)
  Sender: FDA-Public Use
  Company Number: BR200608001280

PATIENT
  Age: 87 Year
  Sex: Female
  Weight: 70 kg

DRUGS (6)
  1. FORTEO [Suspect]
     Indication: OSTEOPOROSIS
     Dosage: 20 UG, DAILY (1/D), SUBCUTANEOUS
     Route: 058
     Dates: start: 20050601
  2. FORTEO PEN (FORTEO PEN) PEN, DISPOSABLE [Concomitant]
  3. MONOCORDIL (ISOSORBIDE MONONITRATE) [Concomitant]
  4. DIGOXIN [Concomitant]
  5. SOMALGIN (ACETYLSALICYLIC ACID, ALUMINIUM GLYCINATE, MAGNESIUM CARBONA [Concomitant]
  6. TYLEX (CARBINOXAMINE MALEATE, PARACETAMOL, PHENYLEPHRINE HYDROCHLORIDE [Concomitant]

REACTIONS (2)
  - LOWER LIMB FRACTURE [None]
  - SURGICAL PROCEDURE REPEATED [None]
